FAERS Safety Report 16964859 (Version 1)
Quarter: 2019Q4

REPORT INFORMATION
  Report Type: Report from Study
  Country: IT (occurrence: IT)
  Receive Date: 20191028
  Receipt Date: 20191028
  Transmission Date: 20200122
  Serious: Yes (Hospitalization)
  Sender: FDA-Public Use
  Company Number: IT-TEVA-2019-IT-1127686

PATIENT
  Age: 72 Year
  Sex: Male

DRUGS (5)
  1. ATENOLOL. [Suspect]
     Active Substance: ATENOLOL
     Indication: HYPERTENSION
     Dosage: 50 MILLIGRAM
     Route: 048
     Dates: start: 20180803, end: 20190803
  2. ENALAPRIL [Suspect]
     Active Substance: ENALAPRIL
     Indication: HYPERTENSION
     Dosage: 20 MILLIGRAM
     Route: 048
     Dates: start: 20180803, end: 20190803
  3. TORVAST 10 MG COMPRESSE RIVESTITE CON FILM [Concomitant]
     Active Substance: ATORVASTATIN CALCIUM
  4. HYDROCHLOROTHIAZIDE. [Suspect]
     Active Substance: HYDROCHLOROTHIAZIDE
     Indication: HYPERTENSION
     Dosage: 12.5 MILLIGRAM
     Route: 048
     Dates: start: 20180803, end: 20190803
  5. CARDIOASPIRIN [Suspect]
     Active Substance: ASPIRIN
     Indication: THROMBOSIS PROPHYLAXIS
     Dosage: 100 MILLIGRAM
     Route: 048
     Dates: start: 20180803, end: 20190803

REACTIONS (1)
  - Infarction [Unknown]

NARRATIVE: CASE EVENT DATE: 20190803
